FAERS Safety Report 14595314 (Version 1)
Quarter: 2018Q1

REPORT INFORMATION
  Report Type: Spontaneous
  Country: US (occurrence: US)
  Receive Date: 20180302
  Receipt Date: 20180302
  Transmission Date: 20180509
  Serious: No
  Sender: FDA-Public Use
  Company Number: US-AKORN PHARMACEUTICALS-2018AKN00021

PATIENT
  Age: 18 Year
  Sex: Female
  Weight: 70.3 kg

DRUGS (10)
  1. LISINOPRIL. [Concomitant]
     Active Substance: LISINOPRIL
  2. MYORISAN [Suspect]
     Active Substance: ISOTRETINOIN
     Indication: ACNE CYSTIC
     Dosage: 20 MG, 2X/DAY
     Route: 048
     Dates: start: 20170928, end: 201710
  3. ORTHO TRI CYCLEN [Concomitant]
     Active Substance: ETHINYL ESTRADIOL\NORGESTIMATE
  4. MYORISAN [Suspect]
     Active Substance: ISOTRETINOIN
     Indication: ACNE
  5. AMNESTEEM [Suspect]
     Active Substance: ISOTRETINOIN
     Indication: ACNE
  6. MYORISAN [Suspect]
     Active Substance: ISOTRETINOIN
     Indication: ACNE
  7. MYORISAN [Suspect]
     Active Substance: ISOTRETINOIN
     Indication: ACNE CYSTIC
     Dosage: 30 MG, 2X/DAY
     Route: 048
     Dates: start: 20171128, end: 20180103
  8. MYORISAN [Suspect]
     Active Substance: ISOTRETINOIN
     Indication: ACNE CYSTIC
     Dosage: 10 MG, 2X/DAY
     Route: 048
     Dates: start: 20170817, end: 201709
  9. MYORISAN [Suspect]
     Active Substance: ISOTRETINOIN
     Indication: ACNE
  10. AMNESTEEM [Suspect]
     Active Substance: ISOTRETINOIN
     Indication: ACNE CYSTIC
     Dosage: 20 MG, 2X/DAY
     Route: 048
     Dates: start: 20171027, end: 201711

REACTIONS (3)
  - Alanine aminotransferase increased [Not Recovered/Not Resolved]
  - Aspartate aminotransferase increased [Not Recovered/Not Resolved]
  - Mean cell volume decreased [Unknown]

NARRATIVE: CASE EVENT DATE: 20171229
